FAERS Safety Report 9586362 (Version 2)
Quarter: 2013Q4

REPORT INFORMATION
  Report Type: Spontaneous
  Country: US (occurrence: US)
  Receive Date: 20131003
  Receipt Date: 20131209
  Transmission Date: 20140711
  Serious: Yes (Hospitalization)
  Sender: FDA-Public Use
  Company Number: US-B.I. PHARMACEUTICALS,INC./RIDGEFIELD-2013-BI-30144BP

PATIENT
  Age: 90 Year
  Sex: Female
  Weight: 59 kg

DRUGS (24)
  1. SPIRIVA [Suspect]
     Indication: PULMONARY FIBROSIS
     Dosage: 18 MCG
     Route: 055
     Dates: start: 2012
  2. PYRIDIUM [Concomitant]
  3. ECOTRIN [Concomitant]
  4. DIGOXIN [Concomitant]
  5. PRILOSEC [Concomitant]
  6. CRESTOR [Concomitant]
  7. SPIRIVA [Concomitant]
  8. VICODIN [Concomitant]
  9. REFRESH OPTHALMIC SOLUTION [Concomitant]
  10. WARFARIN [Concomitant]
  11. VERAPAMIL [Concomitant]
  12. POTASSIUM [Concomitant]
  13. FUROSEMIDE [Concomitant]
  14. FOLIC ACID [Concomitant]
  15. MAGNESIUM OXIDE [Concomitant]
  16. CALTRATE [Concomitant]
  17. ALLOPURINOL [Concomitant]
  18. DIOVAN [Concomitant]
  19. HUMIRA [Concomitant]
  20. METHOTREXATE [Concomitant]
  21. PRESERVISION [Concomitant]
  22. VITAMIN D [Concomitant]
  23. B COMPLEX [Concomitant]
  24. PREDNISONE [Concomitant]

REACTIONS (6)
  - Pain in extremity [Recovered/Resolved]
  - Back injury [Unknown]
  - Weight decreased [Not Recovered/Not Resolved]
  - Coccydynia [Recovered/Resolved]
  - Fall [Unknown]
  - Off label use [Not Recovered/Not Resolved]
